FAERS Safety Report 17604795 (Version 1)
Quarter: 2020Q1

REPORT INFORMATION
  Report Type: Spontaneous
  Country: US (occurrence: US)
  Receive Date: 20200329
  Receipt Date: 20200329
  Transmission Date: 20200409
  Serious: Yes (Hospitalization)
  Sender: FDA-Public Use
  Company Number: None

PATIENT
  Sex: Female

DRUGS (2)
  1. ICATIBANT ACETATE SYR (3-PAK) [Suspect]
     Active Substance: ICATIBANT ACETATE
     Indication: COMPLEMENT FACTOR
     Route: 058
     Dates: start: 20200203
  2. ICATIBANT ACETATE SYR (3-PAK) [Suspect]
     Active Substance: ICATIBANT ACETATE
     Indication: IMMUNE SYSTEM DISORDER
     Route: 058
     Dates: start: 20200203

REACTIONS (2)
  - Pneumonia [None]
  - Pharyngeal swelling [None]
